FAERS Safety Report 10370924 (Version 2)
Quarter: 2014Q3

REPORT INFORMATION
  Report Type: Spontaneous
  Country: FR (occurrence: FR)
  Receive Date: 20140808
  Receipt Date: 20140808
  Transmission Date: 20150326
  Serious: Yes (Hospitalization)
  Sender: FDA-Public Use
  Company Number: FR-PFIZER INC-2014203380

PATIENT
  Age: 79 Year
  Sex: Female

DRUGS (3)
  1. CLAMOXYL [Suspect]
     Active Substance: AMOXICILLIN\CLAVULANIC ACID
     Indication: LUNG INFECTION
     Dosage: 1 G, 2X/DAY
     Route: 048
     Dates: start: 20140324, end: 20140330
  2. EFFEXOR LP [Suspect]
     Active Substance: VENLAFAXINE HYDROCHLORIDE
     Indication: DEPRESSION
     Dosage: 75 MG, 1X/DAY
     Route: 048
     Dates: start: 20140321, end: 20140324
  3. EFFEXOR LP [Suspect]
     Active Substance: VENLAFAXINE HYDROCHLORIDE
     Dosage: 150 MG, DAILY
     Route: 048
     Dates: start: 20140325, end: 20140331

REACTIONS (7)
  - Leukocytosis [Recovering/Resolving]
  - Rash maculo-papular [Recovering/Resolving]
  - Toxic skin eruption [Recovering/Resolving]
  - Pruritus [Recovering/Resolving]
  - Eosinophilia [Unknown]
  - Oedema peripheral [Unknown]
  - Neutrophilia [Recovered/Resolved]

NARRATIVE: CASE EVENT DATE: 20140330
